FAERS Safety Report 14335111 (Version 3)
Quarter: 2018Q1

REPORT INFORMATION
  Report Type: Spontaneous
  Country: GB (occurrence: GB)
  Receive Date: 20171229
  Receipt Date: 20180207
  Transmission Date: 20180509
  Serious: Yes (Other)
  Sender: FDA-Public Use
  Company Number: GB-BEH-2017086183

PATIENT
  Age: 34 Year
  Sex: Male
  Weight: 67.6 kg

DRUGS (3)
  1. IDELVION [Suspect]
     Active Substance: COAGULATION FACTOR IX RECOMBINANT HUMAN
     Dosage: UNK
     Route: 065
  2. IDELVION [Suspect]
     Active Substance: COAGULATION FACTOR IX RECOMBINANT HUMAN
     Dosage: UNK
     Route: 065
  3. IDELVION [Suspect]
     Active Substance: COAGULATION FACTOR IX RECOMBINANT HUMAN
     Indication: FACTOR IX DEFICIENCY
     Dosage: 1500 IU, QW
     Route: 065
     Dates: start: 20171202

REACTIONS (1)
  - Haemorrhage subcutaneous [Recovering/Resolving]
